FAERS Safety Report 8110529-0 (Version None)
Quarter: 2012Q1

REPORT INFORMATION
  Report Type: 
  Country: None (occurrence: None)
  Receive Date: 20120203
  Receipt Date: 20120119
  Transmission Date: 20120608
  Serious: Yes (Other)
  Sender: FDA-Public Use
  Company Number: BR-AMGEN-BRASP2012005929

PATIENT
  Age: 65 Year
  Sex: Male
  Weight: 64 kg

DRUGS (4)
  1. ENBREL [Suspect]
     Indication: RHEUMATOID ARTHRITIS
     Dosage: 50 MG, 1X/WEEK
     Route: 058
     Dates: start: 20110121, end: 20120101
  2. PREDNISONE TAB [Concomitant]
     Dosage: UNK UNK, UNK
  3. HYDROXYCHLOROQUINE SULFATE [Concomitant]
     Dosage: UNK UNK, UNK
  4. METICORTEN [Concomitant]
     Dosage: UNK UNK, UNK

REACTIONS (2)
  - SINUSITIS [None]
  - HYPOTHALAMO-PITUITARY DISORDER [None]
